FAERS Safety Report 11048966 (Version 10)
Quarter: 2023Q1

REPORT INFORMATION
  Report Type: Spontaneous
  Country: US (occurrence: US)
  Receive Date: 20150420
  Receipt Date: 20230210
  Transmission Date: 20230418
  Serious: Yes (Other)
  Sender: FDA-Public Use
  Company Number: US-PFIZER INC-2015131810

PATIENT
  Age: 52 Year
  Sex: Female
  Weight: 125 kg

DRUGS (2)
  1. TOVIAZ [Suspect]
     Active Substance: FESOTERODINE FUMARATE
     Indication: Hypertonic bladder
     Dosage: 4 MG, 1X/DAY
     Route: 048
  2. TOVIAZ [Suspect]
     Active Substance: FESOTERODINE FUMARATE
     Indication: Cystitis interstitial

REACTIONS (8)
  - Systemic lupus erythematosus [Unknown]
  - Drug dependence [Unknown]
  - Pain [Unknown]
  - Herpes zoster [Unknown]
  - Illness [Unknown]
  - Ear infection [Unknown]
  - Dizziness [Unknown]
  - Muscle disorder [Unknown]
